FAERS Safety Report 21284674 (Version 1)
Quarter: 2022Q3

REPORT INFORMATION
  Report Type: Spontaneous
  Country: CN (occurrence: CN)
  Receive Date: 20220902
  Receipt Date: 20220902
  Transmission Date: 20221026
  Serious: Yes (Hospitalization, Other)
  Sender: FDA-Public Use
  Company Number: None

PATIENT
  Age: 49 Year
  Sex: Female
  Weight: 64 kg

DRUGS (4)
  1. CYCLOPHOSPHAMIDE [Suspect]
     Active Substance: CYCLOPHOSPHAMIDE
     Indication: Breast cancer female
     Dosage: 900 MG ONCE DAILY IN DILUTION WITH SODIUM CHLORIDE INJECTION 100ML
     Route: 041
     Dates: start: 20220803, end: 20220803
  2. SODIUM CHLORIDE [Suspect]
     Active Substance: SODIUM CHLORIDE
     Indication: Medication dilution
     Dosage: 100ML DAILY, DILUTED WITH CYCLOPHOSPHAMIDE FOR INJECTION 900 MG
     Route: 041
     Dates: start: 20220803, end: 20220803
  3. DEXTROSE MONOHYDRATE [Suspect]
     Active Substance: DEXTROSE MONOHYDRATE
     Indication: Medication dilution
     Dosage: 100 ML DAILY, DILUTED WITH PIRARUBICIN HYDROCHLORIDE FOR INJECTION 90 MG
     Route: 041
     Dates: start: 20220803, end: 20220803
  4. PIRARUBICIN HYDROCHLORIDE [Suspect]
     Active Substance: PIRARUBICIN HYDROCHLORIDE
     Indication: Breast cancer female
     Dosage: 90 MG ONCE DAILY IN DILUTION WITH GLUCOSE INJECTION 100ML
     Route: 041
     Dates: start: 20220803, end: 20220803

REACTIONS (1)
  - Myelosuppression [Recovered/Resolved]

NARRATIVE: CASE EVENT DATE: 20220817
